FAERS Safety Report 12165243 (Version 1)
Quarter: 2016Q1

REPORT INFORMATION
  Report Type: Spontaneous
  Country: TR (occurrence: TR)
  Receive Date: 20160309
  Receipt Date: 20160309
  Transmission Date: 20160526
  Serious: Yes (Other)
  Sender: FDA-Public Use
  Company Number: TR-BAYER-2016-039489

PATIENT
  Age: 38 Year
  Sex: Female

DRUGS (1)
  1. ASPIRIN. [Suspect]
     Active Substance: ASPIRIN
     Dosage: 100 MG, QD

REACTIONS (5)
  - Balance disorder [None]
  - Tinnitus [None]
  - Sudden hearing loss [None]
  - Cerebral artery occlusion [Recovered/Resolved]
  - Moyamoya disease [Recovered/Resolved]
